FAERS Safety Report 9953323 (Version 2)
Quarter: 2014Q1

REPORT INFORMATION
  Report Type: Report from Study
  Country: US (occurrence: US)
  Receive Date: 20140304
  Receipt Date: 20140304
  Transmission Date: 20141002
  Serious: No
  Sender: FDA-Public Use
  Company Number: US-ABBVIE-12P-163-0958936-00

PATIENT
  Age: 59 Year
  Sex: Male
  Weight: 59.02 kg

DRUGS (3)
  1. HUMIRA 40 MG/0.8 ML PEN [Suspect]
     Indication: CROHN^S DISEASE
     Route: 058
     Dates: start: 201202, end: 201207
  2. HUMIRA 40 MG/0.8 ML PEN [Suspect]
     Dosage: DOSE INCREASED
     Route: 058
     Dates: start: 201207
  3. APRISO [Concomitant]
     Indication: CROHN^S DISEASE
     Dates: start: 2011

REACTIONS (4)
  - Crohn^s disease [Not Recovered/Not Resolved]
  - Drug ineffective [Not Recovered/Not Resolved]
  - Anal sphincter atony [Not Recovered/Not Resolved]
  - Faecal incontinence [Not Recovered/Not Resolved]
